FAERS Safety Report 15043607 (Version 1)
Quarter: 2018Q2

REPORT INFORMATION
  Report Type: Spontaneous
  Country: TH (occurrence: TH)
  Receive Date: 20180621
  Receipt Date: 20180621
  Transmission Date: 20180711
  Serious: Yes (Death, Other)
  Sender: FDA-Public Use
  Company Number: TH-PFIZER INC-2018249559

PATIENT

DRUGS (2)
  1. DOPAMINE [Concomitant]
     Active Substance: DOPAMINE\DOPAMINE HYDROCHLORIDE
     Indication: BLOOD PRESSURE DECREASED
  2. DILANTIN [Suspect]
     Active Substance: PHENYTOIN

REACTIONS (2)
  - Blood pressure decreased [Unknown]
  - Death [Fatal]
